FAERS Safety Report 23494107 (Version 3)
Quarter: 2024Q4

REPORT INFORMATION
  Report Type: Report from Study
  Country: DE (occurrence: DE)
  Receive Date: 20240207
  Receipt Date: 20241108
  Transmission Date: 20250115
  Serious: Yes (Life-Threatening, Hospitalization, Other)
  Sender: ALEXION PHARMACEUTICALS
  Company Number: 2023A211325

PATIENT
  Age: 79 Year
  Weight: 56 kg

DRUGS (43)
  1. FULVESTRANT [Suspect]
     Active Substance: FULVESTRANT
     Indication: Product used for unknown indication
     Dosage: UNK
  2. PALBOCICLIB [Suspect]
     Active Substance: PALBOCICLIB
     Indication: Breast cancer metastatic
     Dosage: 100 MG, QD (ADMINISTRATION SCHEME 21 DAYS INTAKE, 7 DAYS PAUSE)
  3. PALBOCICLIB [Suspect]
     Active Substance: PALBOCICLIB
     Indication: Hormone receptor positive HER2 negative breast cancer
     Dosage: 100 MG, QD (SCHEME 21 DAYS INTAKE, 7 DAYS PAUSE)
  4. PALBOCICLIB [Suspect]
     Active Substance: PALBOCICLIB
     Indication: Breast cancer metastatic
     Dosage: 75 MG, QD (ADMINISTRATION SCHEME 21 DAYS INTAKE, 7 DAYS PAUSE)
  5. PALBOCICLIB [Suspect]
     Active Substance: PALBOCICLIB
     Dosage: 75 MG, QD (ADMINISTRATION SCHEME 21 DAYS INTAKE, 7 DAYS PAUSE)
  6. PALBOCICLIB [Suspect]
     Active Substance: PALBOCICLIB
     Dosage: 75 MG, QD (ADMINISTRATION SCHEME 21 DAYS INTAKE, 7 DAYS PAUSE)
  7. PALBOCICLIB [Suspect]
     Active Substance: PALBOCICLIB
     Dosage: 100 MG, QD (21 DAYS INTAKE, 7 DAYS PAUSE)
  8. PALBOCICLIB [Suspect]
     Active Substance: PALBOCICLIB
     Dosage: 100 MG, QD (ADMINISTRATION SCHEME 21 DAYS INTAKE, 7 DAYS PAUSE)
  9. PALBOCICLIB [Suspect]
     Active Substance: PALBOCICLIB
     Dosage: 100 MG, QD (ADMINISTRATION SCHEME 21 DAYS INTAKE, 7 DAYS PAUSE)
  10. PALBOCICLIB [Suspect]
     Active Substance: PALBOCICLIB
     Dosage: 100 MG (ADMINISTRATION SCHEME 21 DAYS INTAKE, 7 DAYS PAUSE)
  11. PALBOCICLIB [Suspect]
     Active Substance: PALBOCICLIB
     Dosage: 100 MG, QD (ADMINISTRATION SCHEME 21 DAYS INTAKE, 7 DAYS PAUSE)
  12. PALBOCICLIB [Suspect]
     Active Substance: PALBOCICLIB
     Dosage: 100 MG, QD (ADMINISTRATION SCHEME 21 DAYS INTAKE, 7 DAYS PAUSE)
  13. KISQALI [Suspect]
     Active Substance: RIBOCICLIB
     Indication: Hormone receptor positive HER2 negative breast cancer
     Dosage: UNK, QD
  14. KISQALI [Suspect]
     Active Substance: RIBOCICLIB
     Indication: Breast cancer
     Dosage: 600 MG, QD (ADMINISTRATION SCHEME 21 DAYS INTAKE, 7 DAYS PAUSE)
  15. KISQALI [Suspect]
     Active Substance: RIBOCICLIB
     Indication: Breast cancer metastatic
     Dosage: 400 MG, QD (ADMINISTRATION SCHEME 21 DAYS INTAKE, 7 DAYS PAUSE)
  16. KISQALI [Suspect]
     Active Substance: RIBOCICLIB
     Indication: Hormone receptor positive HER2 negative breast cancer
     Dosage: UNK, QD
  17. KISQALI [Suspect]
     Active Substance: RIBOCICLIB
     Dosage: UNK, QD
  18. LETROZOLE [Suspect]
     Active Substance: LETROZOLE
     Indication: Breast cancer
     Dosage: 2.5 MG, QD
  19. LETROZOLE [Suspect]
     Active Substance: LETROZOLE
     Indication: Breast cancer
  20. LETROZOLE [Suspect]
     Active Substance: LETROZOLE
     Indication: Hormone receptor positive HER2 negative breast cancer
  21. LETROZOLE [Suspect]
     Active Substance: LETROZOLE
     Indication: Breast cancer metastatic
  22. LETROZOLE [Suspect]
     Active Substance: LETROZOLE
     Indication: Hormone receptor positive HER2 negative breast cancer
  23. TORSEMIDE [Suspect]
     Active Substance: TORSEMIDE
     Indication: Atrial fibrillation
     Dosage: 10 MG, QD (1X DAILY (MORNING)
     Route: 065
  24. TORSEMIDE [Suspect]
     Active Substance: TORSEMIDE
     Indication: Pleural effusion
     Dosage: 10 MG, QD (1X DAILY (MORNING)
     Route: 065
  25. TORSEMIDE [Suspect]
     Active Substance: TORSEMIDE
     Indication: Oedema peripheral
     Dosage: 10 MG, 1-0.5-0-0
     Route: 065
  26. TORSEMIDE [Suspect]
     Active Substance: TORSEMIDE
     Indication: Cardiac failure
     Dosage: 10 MG (A HALF IN THE MORNING)
     Route: 065
  27. TORSEMIDE [Suspect]
     Active Substance: TORSEMIDE
     Indication: Pleural effusion
  28. TORSEMIDE [Suspect]
     Active Substance: TORSEMIDE
     Indication: Atrial fibrillation
  29. TORSEMIDE [Suspect]
     Active Substance: TORSEMIDE
     Indication: Oedema peripheral
  30. TORSEMIDE [Suspect]
     Active Substance: TORSEMIDE
     Indication: Cardiac failure
  31. CHOLECALCIFEROL [Concomitant]
     Active Substance: CHOLECALCIFEROL
     Indication: Product used for unknown indication
     Dosage: 20000 IU, QMO (MONTHLY)
  32. CHOLECALCIFEROL [Concomitant]
     Active Substance: CHOLECALCIFEROL
     Dosage: 20000 IU, QMO (MONTHLY)
     Route: 065
  33. ASPIRIN [Concomitant]
     Active Substance: ASPIRIN
     Indication: Product used for unknown indication
     Dosage: 100 MG, QD (ONCE PER DAY AT NOON)
     Route: 065
  34. CALCIUM [Concomitant]
     Active Substance: CALCIUM
     Indication: Product used for unknown indication
     Dosage: 400 MG, QD (ONCE PER DAY AT NOON)
     Route: 065
  35. AMLODIPINE BESYLATE\OLMESARTAN MEDOXOMIL [Concomitant]
     Active Substance: AMLODIPINE BESYLATE\OLMESARTAN MEDOXOMIL
     Indication: Product used for unknown indication
     Dosage: 40 MG, QD (ONCE PER DAY IN THE MORNING)
     Route: 065
  36. NOVALGIN [Concomitant]
     Indication: Product used for unknown indication
     Dosage: 500 MG, PRN
     Route: 065
  37. FULVESTRANT [Suspect]
     Active Substance: FULVESTRANT
     Indication: Product used for unknown indication
     Dosage: UNK
     Route: 065
  38. FASLODEX [Suspect]
     Active Substance: FULVESTRANT
     Indication: Product used for unknown indication
     Dosage: UNK
     Route: 065
  39. FASLODEX [Suspect]
     Active Substance: FULVESTRANT
     Indication: Product used for unknown indication
     Dosage: UNK
     Route: 065
  40. TORSEMIDE [Suspect]
     Active Substance: TORSEMIDE
     Indication: Atrial fibrillation
     Dosage: 10 MG (A HALF IN THE MORNING)
     Route: 065
  41. TORSEMIDE [Suspect]
     Active Substance: TORSEMIDE
     Indication: Pleural effusion
     Dosage: 10 MG, QD (1X DAILY (MORNING)
     Route: 065
  42. TORSEMIDE [Suspect]
     Active Substance: TORSEMIDE
     Indication: Oedema peripheral
     Dosage: 10 MG, 1-0.5-0-0
     Route: 065
  43. TORSEMIDE [Suspect]
     Active Substance: TORSEMIDE
     Indication: Cardiac failure
     Dosage: 10 MG, QD (1X DAILY (MORNING)
     Route: 065

REACTIONS (45)
  - Thrombocytopenia [Recovered/Resolved]
  - Blood creatinine increased [Not Recovered/Not Resolved]
  - Product use in unapproved indication [Unknown]
  - Atrial fibrillation [Recovered/Resolved]
  - Neutropenia [Recovered/Resolved]
  - Glomerular filtration rate decreased [Recovering/Resolving]
  - C-reactive protein increased [Not Recovered/Not Resolved]
  - Cystitis [Recovered/Resolved]
  - Cardiac failure [Recovered/Resolved]
  - Renal impairment [Not Recovered/Not Resolved]
  - Chronic kidney disease [Not Recovered/Not Resolved]
  - Dyspnoea [Not Recovered/Not Resolved]
  - Urinary tract infection [Not Recovered/Not Resolved]
  - Blood alkaline phosphatase increased [Recovered/Resolved]
  - Infection [Recovered/Resolved]
  - Bronchitis [Recovered/Resolved]
  - Pleural effusion [Not Recovered/Not Resolved]
  - Blood thyroid stimulating hormone increased [Recovered/Resolved]
  - Oedema peripheral [Recovered/Resolved]
  - Nephrolithiasis [Recovered/Resolved]
  - Asthenia [Unknown]
  - Vomiting [Recovered/Resolved]
  - Eastern Cooperative Oncology Group performance status worsened [Recovered/Resolved]
  - Nausea [Recovered/Resolved]
  - General physical health deterioration [Recovered/Resolved]
  - Anaemia [Not Recovered/Not Resolved]
  - Hypertension [Recovered/Resolved]
  - Leukopenia [Recovered/Resolved]
  - Concomitant disease aggravated [Recovering/Resolving]
  - Dry skin [Recovered/Resolved]
  - Electrocardiogram QT prolonged [Recovered/Resolved]
  - Hyponatraemia [Recovered/Resolved]
  - Blood glucose increased [Recovering/Resolving]
  - Urinary retention [Not Recovered/Not Resolved]
  - Osteoarthritis [Recovered/Resolved]
  - Acute kidney injury [Recovered/Resolved]
  - Blood pressure increased [Not Recovered/Not Resolved]
  - Cardiac failure [Recovered/Resolved with Sequelae]
  - Blood creatinine increased [Not Recovered/Not Resolved]
  - Renal impairment [Not Recovered/Not Resolved]
  - Concomitant disease aggravated [Recovering/Resolving]
  - Osteoarthritis [Recovered/Resolved]
  - Osteoarthritis [Not Recovered/Not Resolved]
  - Acute kidney injury [Recovered/Resolved]
  - Nephrolithiasis [Recovered/Resolved]
